FAERS Safety Report 21059167 (Version 1)
Quarter: 2022Q3

REPORT INFORMATION
  Report Type: Report from Study
  Country: US (occurrence: None)
  Receive Date: 20220708
  Receipt Date: 20220708
  Transmission Date: 20221027
  Serious: Yes (Other)
  Sender: FDA-Public Use
  Company Number: 2022A246388

PATIENT
  Sex: Male
  Weight: 65 kg

DRUGS (1)
  1. IRESSA [Suspect]
     Active Substance: GEFITINIB
     Route: 048
     Dates: start: 20210926, end: 20220501

REACTIONS (2)
  - Disease progression [Unknown]
  - Drug intolerance [Unknown]
